FAERS Safety Report 21631224 (Version 1)
Quarter: 2022Q4

REPORT INFORMATION
  Report Type: Spontaneous
  Country: TR (occurrence: TR)
  Receive Date: 20221123
  Receipt Date: 20221123
  Transmission Date: 20230113
  Serious: Yes (Other)
  Sender: FDA-Public Use
  Company Number: TR-AMGEN-TURSP2022200056

PATIENT

DRUGS (1)
  1. ADALIMUMAB [Suspect]
     Active Substance: ADALIMUMAB
     Indication: Crohn^s disease
     Dosage: UNK
     Route: 065

REACTIONS (6)
  - Anal abscess [Unknown]
  - Adverse reaction [Unknown]
  - Therapy partial responder [Unknown]
  - Therapy non-responder [Unknown]
  - Anal fistula [Unknown]
  - Hypersensitivity [Unknown]
